FAERS Safety Report 22286905 (Version 1)
Quarter: 2023Q2

REPORT INFORMATION
  Report Type: Spontaneous
  Country: US (occurrence: US)
  Receive Date: 20230505
  Receipt Date: 20230505
  Transmission Date: 20230721
  Serious: Yes (Hospitalization, Other)
  Sender: FDA-Public Use
  Company Number: US-BRISTOL-MYERS SQUIBB COMPANY-2023-063349

PATIENT
  Age: 59 Year
  Sex: Female

DRUGS (1)
  1. DIDANOSINE [Suspect]
     Active Substance: DIDANOSINE
     Indication: HIV infection

REACTIONS (3)
  - Portal hypertension [Recovered/Resolved]
  - Varices oesophageal [Recovered/Resolved]
  - Hepatic fibrosis [Recovered/Resolved]
